FAERS Safety Report 4637326-2 (Version None)
Quarter: 2005Q2

REPORT INFORMATION
  Report Type: 
  Country: None (occurrence: None)
  Receive Date: 20050328
  Receipt Date: 20050202
  Transmission Date: 20051028
  Serious: No
  Sender: FDA-Public Use
  Company Number: USA041082171

PATIENT
  Age: 5 Year
  Sex: Male
  Weight: 15 kg

DRUGS (2)
  1. STRATTERA [Suspect]
     Indication: ATTENTION DEFICIT/HYPERACTIVITY DISORDER
     Dosage: 25 MG DAY
     Dates: start: 20040913
  2. GENATROPINE (ATROPINE N-OXIDE HYDROCHLORIDE) [Concomitant]

REACTIONS (7)
  - DRUG INEFFECTIVE [None]
  - HALLUCINATION, AUDITORY [None]
  - LACRIMATION INCREASED [None]
  - MICTURITION URGENCY [None]
  - POLLAKIURIA [None]
  - PRESCRIBED OVERDOSE [None]
  - URINARY RETENTION [None]
